FAERS Safety Report 15395131 (Version 1)
Quarter: 2018Q3

REPORT INFORMATION
  Report Type: Report from Study
  Country: US (occurrence: US)
  Receive Date: 20180918
  Receipt Date: 20180918
  Transmission Date: 20181010
  Serious: Yes (Other)
  Sender: FDA-Public Use
  Company Number: US-ASTELLAS-2018US040888

PATIENT
  Age: 66 Year
  Sex: Female
  Weight: 51 kg

DRUGS (11)
  1. FOLIC ACID. [Concomitant]
     Active Substance: FOLIC ACID
     Indication: PRODUCT USED FOR UNKNOWN INDICATION
     Dosage: UNK, UNKNOWN FREQ.
     Route: 065
  2. ERLOTINIB [Suspect]
     Active Substance: ERLOTINIB
     Dosage: 100 MG, ONCE DAILY TAKE ON EMPTY STOMACH, 1 HR BEFORE/2 HR AFTER FOOD
     Route: 048
  3. ERLOTINIB [Suspect]
     Active Substance: ERLOTINIB
     Route: 048
     Dates: start: 20160801
  4. AZILECT [Concomitant]
     Active Substance: RASAGILINE MESYLATE
     Indication: PARKINSON^S DISEASE
     Dosage: 1 MG, 1/2 TABLET DAILY
     Route: 048
     Dates: start: 201401
  5. CALTRATE                           /00944201/ [Concomitant]
     Active Substance: CALCIUM CARBONATE\CHOLECALCIFEROL
     Indication: PRODUCT USED FOR UNKNOWN INDICATION
     Dosage: UNK, ONCE DAILY
     Route: 065
  6. DOXYCYCLINE. [Concomitant]
     Active Substance: DOXYCYCLINE
     Indication: PRODUCT USED FOR UNKNOWN INDICATION
     Route: 065
  7. SINEMET [Concomitant]
     Active Substance: CARBIDOPA\LEVODOPA
     Indication: PARKINSON^S DISEASE
     Dosage: 25/100 MG, 0.5 DF,1/2 TABLET
     Route: 048
     Dates: start: 20140916
  8. LEVOTHYROXINE. [Concomitant]
     Active Substance: LEVOTHYROXINE
     Indication: PRODUCT USED FOR UNKNOWN INDICATION
     Dosage: ONE DAILY 5 DAYS PER WEEK
     Route: 048
  9. CARBIDOPA/LEVODOPA [Concomitant]
     Active Substance: CARBIDOPA\LEVODOPA
     Indication: PRODUCT USED FOR UNKNOWN INDICATION
     Route: 065
  10. ERLOTINIB [Suspect]
     Active Substance: ERLOTINIB
     Indication: LUNG NEOPLASM MALIGNANT
     Route: 048
     Dates: start: 20140830
  11. ALLEGRA [Concomitant]
     Active Substance: FEXOFENADINE HYDROCHLORIDE
     Indication: PRODUCT USED FOR UNKNOWN INDICATION
     Route: 065

REACTIONS (15)
  - Osteopenia [Unknown]
  - Pain of skin [Not Recovered/Not Resolved]
  - Unevaluable event [Unknown]
  - Dry skin [Not Recovered/Not Resolved]
  - Gait disturbance [Unknown]
  - Lymphadenopathy [Unknown]
  - Pericardial effusion malignant [Unknown]
  - Illiteracy [Unknown]
  - Skin haemorrhage [Not Recovered/Not Resolved]
  - Weight decreased [Unknown]
  - Skin exfoliation [Not Recovered/Not Resolved]
  - Rash [Unknown]
  - Parkinson^s disease [Recovering/Resolving]
  - Malignant pleural effusion [Unknown]
  - Dermatitis [Unknown]

NARRATIVE: CASE EVENT DATE: 201409
